FAERS Safety Report 4641548-4 (Version None)
Quarter: 2005Q2

REPORT INFORMATION
  Report Type: 
  Country: None (occurrence: None)
  Receive Date: 20050421
  Receipt Date: 20050411
  Transmission Date: 20051028
  Serious: Yes (Other)
  Sender: FDA-Public Use
  Company Number: CA-JNJFOC-20050206201

PATIENT
  Sex: Male
  Weight: 65 kg

DRUGS (2)
  1. RISPERDAL [Suspect]
  2. METHYLPHENIDATE HCL [Concomitant]
     Dosage: 20 MG AT 0700, 15 MG AT NOON, AND 10 MG AT 1600 HOURS.

REACTIONS (2)
  - RHABDOMYOLYSIS [None]
  - SELF INJURIOUS BEHAVIOUR [None]
